FAERS Safety Report 5421164-7 (Version None)
Quarter: 2007Q3

REPORT INFORMATION
  Report Type: 
  Country: None (occurrence: None)
  Receive Date: 20070821
  Receipt Date: 20070809
  Transmission Date: 20080115
  Serious: Yes (Death)
  Sender: FDA-Public Use
  Company Number: FR-GENENTECH-246100

PATIENT

DRUGS (2)
  1. RITUXIMAB [Suspect]
     Indication: PEMPHIGUS
     Dosage: 375 MG/M2, UNK
  2. ETANERCEPT [Concomitant]
     Indication: RHEUMATOID ARTHRITIS

REACTIONS (1)
  - SEPSIS [None]
